FAERS Safety Report 23916716 (Version 1)
Quarter: 2024Q2

REPORT INFORMATION
  Report Type: Spontaneous
  Country: US (occurrence: None)
  Receive Date: 20240529
  Receipt Date: 20240529
  Transmission Date: 20240715
  Serious: Yes (Hospitalization)
  Sender: FDA-Public Use
  Company Number: None

PATIENT
  Age: 76 Year
  Sex: Female

DRUGS (12)
  1. OZEMPIC [Suspect]
     Active Substance: SEMAGLUTIDE
     Indication: Diabetes mellitus
     Dosage: OTHER FREQUENCY : WEEKLY;?
     Dates: start: 20240201, end: 20240411
  2. OZEMPIC [Suspect]
     Active Substance: SEMAGLUTIDE
     Indication: Weight control
  3. VITAMIN D2 [Concomitant]
     Active Substance: ERGOCALCIFEROL
  4. ELIQUIS [Concomitant]
     Active Substance: APIXABAN
  5. FARXIGA [Concomitant]
     Active Substance: DAPAGLIFLOZIN PROPANEDIOL
  6. PIOGLITAZONE [Concomitant]
     Active Substance: PIOGLITAZONE
  7. REPAGLINIDE [Concomitant]
     Active Substance: REPAGLINIDE
  8. OLMESARTAN [Concomitant]
     Active Substance: OLMESARTAN
  9. GIMOTI NASAL SPRAY [Concomitant]
  10. ACID-PREP [Concomitant]
  11. PROBIOMAX SERENITY [Concomitant]
  12. ROSUVASTATIN [Concomitant]
     Active Substance: ROSUVASTATIN

REACTIONS (7)
  - Nausea [None]
  - Syncope [None]
  - Dysstasia [None]
  - Hypophagia [None]
  - Asthenia [None]
  - Abdominal pain [None]
  - Incoherent [None]

NARRATIVE: CASE EVENT DATE: 20240415
